FAERS Safety Report 23736816 (Version 5)
Quarter: 2024Q3

REPORT INFORMATION
  Report Type: Report from Study
  Country: DE (occurrence: DE)
  Receive Date: 20240412
  Receipt Date: 20240730
  Transmission Date: 20241017
  Serious: Yes (Life-Threatening, Hospitalization)
  Sender: RANBAXY
  Company Number: DE-SUNPHARMA-2024RR-440996AA

PATIENT
  Age: 61 Year
  Sex: Male

DRUGS (8)
  1. TILDRAKIZUMAB [Suspect]
     Active Substance: TILDRAKIZUMAB
     Indication: Psoriasis
     Dosage: 1.190 MILLIGRAM(S) (100 MILLIGRAM(S), 1 IN 12 WEEK
     Route: 058
     Dates: start: 20200714, end: 20230926
  2. TILDRAKIZUMAB [Suspect]
     Active Substance: TILDRAKIZUMAB
     Dosage: 100 MILLIGRAM, UNK
     Route: 058
     Dates: start: 20211110, end: 20211110
  3. TILDRAKIZUMAB [Suspect]
     Active Substance: TILDRAKIZUMAB
     Dosage: 100 MILLIGRAM, UNK
     Route: 058
     Dates: start: 20220209, end: 20220209
  4. TILDRAKIZUMAB [Suspect]
     Active Substance: TILDRAKIZUMAB
     Dosage: 100 MILLIGRAM, UNK
     Route: 058
     Dates: start: 20220511, end: 20220511
  5. TILDRAKIZUMAB [Suspect]
     Active Substance: TILDRAKIZUMAB
     Dosage: 100 MILLIGRAM, UNK
     Route: 058
     Dates: start: 20220831, end: 20220831
  6. TILDRAKIZUMAB [Suspect]
     Active Substance: TILDRAKIZUMAB
     Dosage: 100 MILLIGRAM, UNK
     Route: 058
     Dates: start: 20221206, end: 20221206
  7. TILDRAKIZUMAB [Suspect]
     Active Substance: TILDRAKIZUMAB
     Dosage: 100 MILLIGRAM, UNK
     Route: 058
  8. TILDRAKIZUMAB [Suspect]
     Active Substance: TILDRAKIZUMAB
     Dosage: 100 MILLIGRAM, UNK
     Route: 058
     Dates: start: 20230613, end: 20230926

REACTIONS (1)
  - Pancreatitis necrotising [Recovered/Resolved with Sequelae]

NARRATIVE: CASE EVENT DATE: 20230917
